FAERS Safety Report 4771011-1 (Version None)
Quarter: 2005Q3

REPORT INFORMATION
  Report Type: 
  Country: None (occurrence: None)
  Receive Date: 20050914
  Receipt Date: 20050825
  Transmission Date: 20060218
  Serious: Yes (Death)
  Sender: FDA-Public Use
  Company Number: 12266

PATIENT
  Age: 29 Year
  Sex: Female

DRUGS (3)
  1. MORPHINE [Suspect]
     Indication: HEADACHE
     Dosage: 30 MG DAILY PO
     Route: 048
  2. ANTIBIOTICS [Concomitant]
  3. ANTIEMETICS [Concomitant]

REACTIONS (8)
  - BRAIN OEDEMA [None]
  - EPSTEIN-BARR VIRUS INFECTION [None]
  - HEADACHE [None]
  - LYMPHADENOPATHY [None]
  - OBSTRUCTIVE AIRWAYS DISORDER [None]
  - SPLENOMEGALY [None]
  - TONSILLAR HYPERTROPHY [None]
  - VOMITING [None]
